FAERS Safety Report 5830770-7 (Version None)
Quarter: 2008Q3

REPORT INFORMATION
  Report Type: 
  Country: None (occurrence: None)
  Receive Date: 20080801
  Receipt Date: 20071115
  Transmission Date: 20090109
  Serious: No
  Sender: FDA-Public Use
  Company Number: US-BRISTOL-MYERS SQUIBB COMPANY-13984141

PATIENT
  Age: 57 Year
  Sex: Female
  Weight: 58 kg

DRUGS (8)
  1. COUMADIN [Suspect]
     Dosage: INCREASE 2 TABS ON FRIDAY,1TAB REMAIN DAYS.3TABS ON 11/09/07;2TABS ON TUES,FRIDAY,1TAB ON OTHER DAYS
  2. PLAVIX [Suspect]
     Indication: STENT PLACEMENT
     Dosage: 1 DOSAGE FORM = 1 TABLET
     Dates: start: 20060701
  3. PROTONIX [Concomitant]
  4. FUROSEMIDE [Concomitant]
  5. POTASSIUM CHLORIDE [Concomitant]
  6. ASPIRIN [Concomitant]
  7. TOPROL-XL [Concomitant]
  8. LIPITOR [Concomitant]

REACTIONS (3)
  - ALOPECIA [None]
  - EPISTAXIS [None]
  - INTERNATIONAL NORMALISED RATIO ABNORMAL [None]
